FAERS Safety Report 20368784 (Version 2)
Quarter: 2022Q1

REPORT INFORMATION
  Report Type: Report from Study
  Country: US (occurrence: US)
  Receive Date: 20220124
  Receipt Date: 20220325
  Transmission Date: 20220423
  Serious: No
  Sender: FDA-Public Use
  Company Number: US-NOVARTISTESTPH-NVSC2022US014157

PATIENT
  Sex: Female
  Weight: 57.596 kg

DRUGS (1)
  1. TREPROSTINIL [Suspect]
     Active Substance: TREPROSTINIL
     Indication: Product used for unknown indication
     Dosage: 10 NG/KG/MIN (CONTINUOUS)
     Route: 042
     Dates: start: 20220114

REACTIONS (4)
  - Fatigue [Unknown]
  - Night sweats [Unknown]
  - Diarrhoea [Unknown]
  - Infection [Unknown]
